FAERS Safety Report 6968788-3 (Version None)
Quarter: 2010Q3

REPORT INFORMATION
  Report Type: 
  Country: None (occurrence: None)
  Receive Date: 20100907
  Receipt Date: 20100825
  Transmission Date: 20110219
  Serious: Yes (Other)
  Sender: FDA-Public Use
  Company Number: PHHY2010AU57314

PATIENT
  Sex: Male

DRUGS (1)
  1. ZOLEDRONIC [Suspect]
     Dosage: 5 MG
     Route: 042
     Dates: start: 20090629

REACTIONS (2)
  - DRUG INEFFECTIVE [None]
  - MULTIPLE FRACTURES [None]
